FAERS Safety Report 20976858 (Version 2)
Quarter: 2022Q3

REPORT INFORMATION
  Report Type: Spontaneous
  Country: JP (occurrence: JP)
  Receive Date: 20220617
  Receipt Date: 20220912
  Transmission Date: 20221027
  Serious: Yes (Other)
  Sender: FDA-Public Use
  Company Number: JP-CHUGAI-2022022123

PATIENT
  Age: 63 Year
  Sex: Male
  Weight: 62.6 kg

DRUGS (13)
  1. TECENTRIQ [Suspect]
     Active Substance: ATEZOLIZUMAB
     Indication: Hepatocellular carcinoma
     Dosage: 1200 MILLIGRAM, ONCE/3WEEKS
     Route: 041
     Dates: start: 20211109
  2. TECENTRIQ [Suspect]
     Active Substance: ATEZOLIZUMAB
     Dosage: 1200 MILLIGRAM, ONCE/3WEEKS
     Route: 041
     Dates: start: 20220607
  3. AVASTIN [Suspect]
     Active Substance: BEVACIZUMAB
     Indication: Hepatocellular carcinoma
     Dosage: 900 MILLIGRAM, ONCE/3WEEKS
     Route: 041
     Dates: start: 20211109, end: 20220426
  4. AVASTIN [Suspect]
     Active Substance: BEVACIZUMAB
     Dosage: 800 MILLIGRAM, SINGLE
     Route: 041
     Dates: start: 20220607, end: 20220607
  5. AVASTIN [Suspect]
     Active Substance: BEVACIZUMAB
     Dosage: 900 MILLIGRAM, SINGLE
     Route: 041
     Dates: start: 20220802, end: 20220802
  6. AVASTIN [Suspect]
     Active Substance: BEVACIZUMAB
     Dosage: 850 MILLIGRAM, ONCE/3WEEKS
     Route: 041
     Dates: start: 20220823
  7. RIFAXIMIN [Concomitant]
     Active Substance: RIFAXIMIN
     Dosage: UNK
     Route: 065
     Dates: start: 20220505
  8. LACTULOSE [Concomitant]
     Active Substance: LACTULOSE
     Dosage: UNK
     Route: 065
     Dates: start: 20220506
  9. MIYA-BM [Concomitant]
     Active Substance: CLOSTRIDIUM BUTYRICUM SPORES STRAIN M-55
     Dosage: UNK
     Route: 065
     Dates: start: 20220329
  10. NALFURAFINE HYDROCHLORIDE [Concomitant]
     Active Substance: NALFURAFINE HYDROCHLORIDE
     Dosage: UNK
     Route: 065
     Dates: start: 20210824
  11. LASIX [Concomitant]
     Active Substance: FUROSEMIDE
     Dosage: UNK
     Route: 065
     Dates: start: 20220329
  12. SPIRONOLACTONE [Concomitant]
     Active Substance: SPIRONOLACTONE
     Dosage: UNK
     Route: 065
     Dates: start: 20220329
  13. NEXIUM [Concomitant]
     Active Substance: ESOMEPRAZOLE MAGNESIUM
     Dosage: UNK
     Route: 065
     Dates: start: 20220111

REACTIONS (2)
  - Adrenal insufficiency [Recovered/Resolved]
  - Hypothyroidism [Recovered/Resolved]

NARRATIVE: CASE EVENT DATE: 20220517
